FAERS Safety Report 8458890-1 (Version None)
Quarter: 2012Q2

REPORT INFORMATION
  Report Type: 
  Country: None (occurrence: None)
  Receive Date: 20120622
  Receipt Date: 20120612
  Transmission Date: 20120825
  Serious: Yes (Hospitalization)
  Sender: FDA-Public Use
  Company Number: US-BAYER-2012-028679

PATIENT
  Age: 27 Year
  Sex: Female
  Weight: 56.236 kg

DRUGS (6)
  1. YAZ [Suspect]
     Indication: CONTRACEPTION
     Dosage: UNK
     Dates: start: 20081201, end: 20100727
  2. IBUPROFEN (ADVIL) [Concomitant]
     Indication: HEADACHE
  3. MORPHINE [Concomitant]
  4. HYDROCODONE BITARTRATE + ACETAMINOPHEN [Concomitant]
  5. FLEXERIL [Concomitant]
     Indication: PAIN IN EXTREMITY
  6. ETODOLAC [Concomitant]
     Indication: PAIN IN EXTREMITY

REACTIONS (8)
  - INJURY [None]
  - ANXIETY [None]
  - EMOTIONAL DISTRESS [None]
  - ANHEDONIA [None]
  - PULMONARY EMBOLISM [None]
  - PAIN [None]
  - DEEP VEIN THROMBOSIS [None]
  - GENERAL PHYSICAL HEALTH DETERIORATION [None]
